FAERS Safety Report 7168318-X (Version None)
Quarter: 2010Q4

REPORT INFORMATION
  Report Type: 
  Country: None (occurrence: None)
  Receive Date: 20101216
  Receipt Date: 20101208
  Transmission Date: 20110411
  Serious: Yes (Death, Hospitalization)
  Sender: FDA-Public Use
  Company Number: JP-AMGEN-JPNCT2010009367

PATIENT

DRUGS (14)
  1. PANITUMUMAB [Suspect]
     Indication: COLORECTAL CANCER
     Dosage: 6 MG/KG, Q2WK
     Route: 041
     Dates: start: 20100820, end: 20100903
  2. PANITUMUMAB [Suspect]
     Dosage: 6 MG/KG, Q2WK
     Route: 041
     Dates: start: 20101001, end: 20101112
  3. ANTIHISTAMINES [Concomitant]
     Indication: PROPHYLAXIS
     Route: 065
  4. CORTICOSTEROIDS [Concomitant]
     Indication: PROPHYLAXIS
     Route: 065
  5. OXALIPLATIN [Concomitant]
     Indication: COLORECTAL CANCER
     Route: 041
     Dates: start: 20100820, end: 20101112
  6. FLUOROURACIL [Concomitant]
     Indication: COLORECTAL CANCER
     Route: 040
     Dates: start: 20100820, end: 20101112
  7. FLUOROURACIL [Concomitant]
     Route: 041
     Dates: start: 20100820, end: 20101112
  8. CALCIUM LEVOFOLINATE [Concomitant]
     Indication: COLORECTAL CANCER
     Route: 041
     Dates: start: 20100820, end: 20101112
  9. OXYCONTIN [Concomitant]
     Route: 048
  10. CEPHARANTHIN [Concomitant]
     Route: 048
  11. JUUZENTAIHOTOU [Concomitant]
     Route: 048
  12. URINORM [Concomitant]
     Route: 048
  13. URALYT [Concomitant]
     Route: 048
  14. NORVASC [Concomitant]
     Route: 048

REACTIONS (2)
  - DERMATITIS [None]
  - INTERSTITIAL LUNG DISEASE [None]
